FAERS Safety Report 9484303 (Version 2)
Quarter: 2013Q3

REPORT INFORMATION
  Report Type: Spontaneous
  Country: CA (occurrence: CA)
  Receive Date: 20130828
  Receipt Date: 20130828
  Transmission Date: 20140515
  Serious: Yes (Hospitalization, Other)
  Sender: FDA-Public Use
  Company Number: CA-AMGEN-KDL277322

PATIENT
  Age: 23 Year
  Sex: Female
  Weight: 68.1 kg

DRUGS (1)
  1. ENBREL [Suspect]
     Indication: ANKYLOSING SPONDYLITIS
     Dosage: UNK UNK, QWK
     Route: 065
     Dates: start: 20080315

REACTIONS (23)
  - Retroperitoneal lymphadenopathy [Not Recovered/Not Resolved]
  - Sensory loss [Unknown]
  - Ovarian cyst [Unknown]
  - Ovarian adhesion [Unknown]
  - Endometriosis [Not Recovered/Not Resolved]
  - Abnormal faeces [Unknown]
  - Erythema [Recovering/Resolving]
  - Skin burning sensation [Recovering/Resolving]
  - Night sweats [Not Recovered/Not Resolved]
  - Injection site mass [Not Recovered/Not Resolved]
  - Feeling hot [Not Recovered/Not Resolved]
  - Injection site warmth [Not Recovered/Not Resolved]
  - Injection site reaction [Not Recovered/Not Resolved]
  - Injection site erythema [Not Recovered/Not Resolved]
  - Weight increased [Unknown]
  - Nausea [Unknown]
  - Dizziness [Unknown]
  - Fatigue [Unknown]
  - Headache [Unknown]
  - Pruritus [Recovering/Resolving]
  - Pain [Unknown]
  - Injection site pain [Not Recovered/Not Resolved]
  - Flushing [Not Recovered/Not Resolved]
